FAERS Safety Report 10227586 (Version 1)
Quarter: 2014Q2

REPORT INFORMATION
  Report Type: Spontaneous
  Country: US (occurrence: None)
  Receive Date: 20140606
  Receipt Date: 20140606
  Transmission Date: 20141212
  Serious: Yes (Death, Other)
  Sender: FDA-Public Use
  Company Number: ADR-2014-00964

PATIENT
  Age: 60 Year
  Sex: Male

DRUGS (3)
  1. COMPOUNDED BACLOFEN INTRATHECAL [Suspect]
     Indication: PAIN
     Dates: start: 20130510
  2. DILAUDID INTRATHECAL [Suspect]
  3. BUPIVACAINE INTRATHECAL [Suspect]

REACTIONS (1)
  - Prostate cancer [None]
